FAERS Safety Report 10110818 (Version 2)
Quarter: 2014Q4

REPORT INFORMATION
  Report Type: Other
  Country: US (occurrence: US)
  Receive Date: 20140425
  Receipt Date: 20141209
  Transmission Date: 20150528
  Serious: Yes (Hospitalization, Other)
  Sender: FDA-Public Use
  Company Number: US-GSKPPD-2014GSK007944

PATIENT
  Age: 59 Year
  Sex: Male

DRUGS (3)
  1. METOPROLOL [Concomitant]
     Active Substance: METOPROLOL
  2. DIOVAN [Concomitant]
     Active Substance: VALSARTAN
     Dosage: 160/12.5 MG
  3. AVANDIA [Suspect]
     Active Substance: ROSIGLITAZONE MALEATE
     Indication: DIABETES MELLITUS
     Dosage: AVANDIA WAS NOT LISTED AMONG THE PATIENTS DISCHARGE RECORDS.
     Route: 048

REACTIONS (1)
  - Myocardial infarction [Recovered/Resolved]

NARRATIVE: CASE EVENT DATE: 20070124
